FAERS Safety Report 23607701 (Version 1)
Quarter: 2024Q1

REPORT INFORMATION
  Report Type: Spontaneous
  Country: US (occurrence: None)
  Receive Date: 20240307
  Receipt Date: 20240307
  Transmission Date: 20240410
  Serious: Yes (Hospitalization)
  Sender: FDA-Public Use
  Company Number: None

PATIENT
  Age: 67 Year
  Sex: Female
  Weight: 85.5 kg

DRUGS (5)
  1. LYRICA [Suspect]
     Active Substance: PREGABALIN
     Indication: Neuropathy peripheral
     Dosage: OTHER QUANTITY : 1 TABLET(S);?FREQUENCY : TWICE A DAY;?
     Route: 048
     Dates: start: 20240111, end: 20240116
  2. LAMOTRIGINE [Concomitant]
     Active Substance: LAMOTRIGINE
  3. ACETAMINOPHEN [Concomitant]
     Active Substance: ACETAMINOPHEN
  4. ANTACID [Concomitant]
     Active Substance: ALUMINUM HYDROXIDE\CALCIUM CARBONATE\DIMETHICONE\MAGNESIUM HYDROXIDE
  5. SENNA [Concomitant]
     Active Substance: SENNA LEAF\SENNOSIDES\SENNOSIDES A AND B

REACTIONS (11)
  - Dyskinesia [None]
  - Dyskinesia [None]
  - Fall [None]
  - Ligament sprain [None]
  - Contusion [None]
  - Contusion [None]
  - Tibia fracture [None]
  - Decubitus ulcer [None]
  - Medical device site injury [None]
  - Back disorder [None]
  - Gait disturbance [None]

NARRATIVE: CASE EVENT DATE: 20240116
